FAERS Safety Report 9849313 (Version 1)
Quarter: 2014Q1

REPORT INFORMATION
  Report Type: Spontaneous
  Country: US (occurrence: None)
  Receive Date: 20140124
  Receipt Date: 20140124
  Transmission Date: 20141002
  Serious: No
  Sender: FDA-Public Use
  Company Number: None

PATIENT
  Age: 46 Year
  Sex: Male
  Weight: 72.58 kg

DRUGS (9)
  1. INSULIN [Suspect]
  2. VASOTEC [Concomitant]
  3. LANTUS INSULIN [Concomitant]
  4. REGULAR INSULIN [Concomitant]
  5. HUMELOG INSULIN [Concomitant]
  6. BABY ASPIRIN [Concomitant]
  7. IBUPROFEN [Concomitant]
  8. GLUCOSAMINE [Concomitant]
  9. DOCUSATE [Concomitant]

REACTIONS (2)
  - Blood glucose increased [None]
  - Product quality issue [None]
